FAERS Safety Report 4608090-8 (Version None)
Quarter: 2005Q2

REPORT INFORMATION
  Report Type: 
  Country: None (occurrence: None)
  Receive Date: 20050303
  Receipt Date: 20041109
  Transmission Date: 20051028
  Serious: No
  Sender: FDA-Public Use
  Company Number: 209801

PATIENT
  Age: 64 Year
  Sex: Male
  Weight: 72.6 kg

DRUGS (1)
  1. XOLAIR [Suspect]
     Indication: ASTHMA
     Dosage: 300 MG, Q2W, SUBCUTANEOUS
     Route: 058
     Dates: start: 20031117, end: 20041026

REACTIONS (1)
  - ASTHMA [None]
